FAERS Safety Report 7168985 (Version 5)
Quarter: 2013Q4

REPORT INFORMATION
  Report Type: Spontaneous
  Country: US (occurrence: US)
  Receive Date: 20091106
  Receipt Date: 20131205
  Transmission Date: 20140711
  Serious: Yes (Hospitalization, Other)
  Sender: FDA-Public Use
  Company Number: US-ALEXION-A200900904

PATIENT
  Age: 21 Year
  Sex: Female
  Weight: 48.08 kg

DRUGS (10)
  1. SOLIRIS [Suspect]
     Indication: PAROXYSMAL NOCTURNAL HAEMOGLOBINURIA
     Dosage: 600 MG, QW
     Route: 042
     Dates: start: 20090113, end: 20090129
  2. SOLIRIS [Suspect]
     Dosage: 600 MG, QW
     Route: 042
     Dates: start: 20090326, end: 20090421
  3. SOLIRIS [Suspect]
     Dosage: 900 MG, SINGLE
     Route: 042
     Dates: start: 20090428, end: 20090428
  4. SOLIRIS [Suspect]
     Dosage: 900 MG, SINGLE
     Route: 042
     Dates: start: 20090518, end: 20090518
  5. SOLIRIS [Suspect]
     Dosage: 900 MG, Q2W
     Route: 042
     Dates: start: 20090602, end: 20090616
  6. SOLIRIS [Suspect]
     Dosage: 900 MG, SINGLE
     Route: 042
     Dates: start: 20090717, end: 20090717
  7. SOLIRIS [Suspect]
     Dosage: 600 MG, SINGLE
     Route: 042
     Dates: start: 20090924, end: 20090924
  8. SOLIRIS [Suspect]
     Dosage: 600 MG, SINGLE
     Route: 042
     Dates: start: 20091009, end: 20091009
  9. ULTRAM [Concomitant]
     Indication: DYSMENORRHOEA
     Dosage: 50 MG, Q8H
     Route: 048
     Dates: start: 20090917
  10. OXYCODONE [Concomitant]
     Indication: PAIN
     Dosage: 1 TAB Q 4-6 HR PRN
     Route: 048
     Dates: start: 20090820

REACTIONS (5)
  - Platelet count decreased [Unknown]
  - Malaise [Unknown]
  - Anaemia [Not Recovered/Not Resolved]
  - Menorrhagia [Unknown]
  - Drug dose omission [Not Recovered/Not Resolved]
